FAERS Safety Report 26203667 (Version 1)
Quarter: 2025Q4

REPORT INFORMATION
  Report Type: Spontaneous
  Country: EU (occurrence: EU)
  Receive Date: 20251226
  Receipt Date: 20251226
  Transmission Date: 20260118
  Serious: Yes (Other)
  Sender: BRISTOL-MYERS SQUIBB COMPANY
  Company Number: None

PATIENT
  Age: 69 Year
  Sex: Female
  Weight: 77 kg

DRUGS (1)
  1. TRIAMCINOLONE ACETONIDE [Suspect]
     Active Substance: TRIAMCINOLONE ACETONIDE
     Indication: Osteoarthritis
     Dosage: 3 X WITHIN 15 WEEKS 19-JUN-2025 AND 22-AUG-2025 AND 03-OCT-2025

REACTIONS (9)
  - Depressed mood [Recovering/Resolving]
  - Insomnia [Recovering/Resolving]
  - Palpitations [Recovered/Resolved]
  - Anger [Recovering/Resolving]
  - Weight increased [Recovering/Resolving]
  - Suicidal ideation [Recovering/Resolving]
  - Mood swings [Recovering/Resolving]
  - Blood pressure increased [Recovered/Resolved]
  - Nightmare [Recovering/Resolving]
